FAERS Safety Report 6590232-9 (Version None)
Quarter: 2010Q1

REPORT INFORMATION
  Report Type: 
  Country: None (occurrence: None)
  Receive Date: 20100219
  Receipt Date: 20100211
  Transmission Date: 20100710
  Serious: Yes (Other)
  Sender: FDA-Public Use
  Company Number: IT-ASTRAZENECA-2010SE06157

PATIENT
  Age: 85 Year
  Sex: Female

DRUGS (1)
  1. MERREM [Suspect]
     Indication: SEPSIS
     Route: 042
     Dates: start: 20100113, end: 20100114

REACTIONS (1)
  - BRONCHOSPASM [None]
